FAERS Safety Report 25645231 (Version 1)
Quarter: 2025Q3

REPORT INFORMATION
  Report Type: Spontaneous
  Country: US (occurrence: US)
  Receive Date: 20250805
  Receipt Date: 20250805
  Transmission Date: 20251021
  Serious: Yes (Other)
  Sender: ORGANON
  Company Number: US-MLMSERVICE-20250723-PI588745-00226-1

PATIENT
  Sex: Female

DRUGS (9)
  1. REMERON [Suspect]
     Active Substance: MIRTAZAPINE
     Indication: Depression
     Dosage: AT BEDTIME FOR ONE WEEK WITH A PLAN TO TITRATE UP TO 7.5 MG AFTERWARDS
  2. REMERON [Suspect]
     Active Substance: MIRTAZAPINE
     Dosage: INCREASED TO 15 MG ORAL AT BEDTIME
     Dates: end: 2024
  3. REMERON [Suspect]
     Active Substance: MIRTAZAPINE
     Dates: end: 2024
  4. REMERON [Suspect]
     Active Substance: MIRTAZAPINE
  5. AMITRIPTYLINE [Concomitant]
     Active Substance: AMITRIPTYLINE
  6. AMITRIPTYLINE [Concomitant]
     Active Substance: AMITRIPTYLINE
  7. AMITRIPTYLINE [Concomitant]
     Active Substance: AMITRIPTYLINE
  8. TRAZODONE [Concomitant]
     Active Substance: TRAZODONE HYDROCHLORIDE
     Indication: Hypersomnia
  9. SERTRALINE [Concomitant]
     Active Substance: SERTRALINE HYDROCHLORIDE
     Indication: Anxiety

REACTIONS (3)
  - Tardive dyskinesia [Unknown]
  - Oral pain [Unknown]
  - Pain in jaw [Unknown]
